FAERS Safety Report 8369325-1 (Version None)
Quarter: 2012Q2

REPORT INFORMATION
  Report Type: 
  Country: None (occurrence: None)
  Receive Date: 20120518
  Receipt Date: 20120514
  Transmission Date: 20120825
  Serious: Yes (Other)
  Sender: FDA-Public Use
  Company Number: PHHY2012DE033431

PATIENT
  Sex: Male
  Weight: 100 kg

DRUGS (1)
  1. EXTAVIA [Suspect]
     Indication: ENCEPHALOMYELITIS
     Dosage: 1 ML, QOD
     Route: 058
     Dates: start: 20110420

REACTIONS (2)
  - MICROCYTIC ANAEMIA [None]
  - IRON DEFICIENCY [None]
